FAERS Safety Report 14713301 (Version 1)
Quarter: 2018Q2

REPORT INFORMATION
  Report Type: Spontaneous
  Country: US (occurrence: US)
  Receive Date: 20180404
  Receipt Date: 20180404
  Transmission Date: 20180711
  Serious: Yes (Other)
  Sender: FDA-Public Use
  Company Number: US-TEVA-2018-US-876059

PATIENT
  Sex: Male

DRUGS (5)
  1. ACTIQ [Suspect]
     Active Substance: FENTANYL CITRATE
     Route: 064
  2. FENTANYL. [Suspect]
     Active Substance: FENTANYL
     Route: 064
  3. OXYMORPHONE HYDROCHLORIDE. [Suspect]
     Active Substance: OXYMORPHONE HYDROCHLORIDE
     Route: 064
  4. MORPHINE EXTENDED RELEASE [Suspect]
     Active Substance: MORPHINE
     Route: 064
  5. FENTORA [Suspect]
     Active Substance: FENTANYL CITRATE
     Route: 064

REACTIONS (2)
  - Foetal exposure during pregnancy [Unknown]
  - Drug withdrawal syndrome neonatal [Unknown]
